FAERS Safety Report 5774799-6 (Version None)
Quarter: 2008Q2

REPORT INFORMATION
  Report Type: 
  Country: None (occurrence: None)
  Receive Date: 20080616
  Receipt Date: 20080616
  Transmission Date: 20081010
  Serious: Yes (Other)
  Sender: FDA-Public Use
  Company Number: None

PATIENT
  Sex: Female
  Weight: 52.1637 kg

DRUGS (2)
  1. AZELASTINE HCL [Suspect]
     Indication: RHINITIS
     Dosage: SPRAY - 30ML BOTTLE, MORNINGS +  NIGHT
     Dates: start: 20060401, end: 20070401
  2. SINGULAIR [Suspect]
     Indication: RHINITIS
     Dosage: 10MG (TABLET)  1 X DAY
     Dates: start: 20050401, end: 20070401

REACTIONS (12)
  - ANXIETY [None]
  - BONE PAIN [None]
  - DEPRESSION [None]
  - FATIGUE [None]
  - IMPAIRED WORK ABILITY [None]
  - INFECTION [None]
  - INFECTION PARASITIC [None]
  - LYMPHADENOPATHY [None]
  - MALAISE [None]
  - NAUSEA [None]
  - PARASITE STOOL TEST [None]
  - SINUS DISORDER [None]
